FAERS Safety Report 7935921-6 (Version None)
Quarter: 2011Q4

REPORT INFORMATION
  Report Type: 
  Country: None (occurrence: None)
  Receive Date: 20111121
  Receipt Date: 20111031
  Transmission Date: 20120403
  Serious: Yes (Other)
  Sender: FDA-Public Use
  Company Number: JP-2011-11801

PATIENT
  Age: 89 Year
  Sex: Male

DRUGS (13)
  1. SAMSCA [Suspect]
     Indication: FLUID RETENTION
     Dosage: 15 MG MILLIGRAM(S), GAM, ORAL
     Route: 048
     Dates: start: 20111018, end: 20111019
  2. LANSOPRAZOLE [Concomitant]
  3. ASPIRIN [Concomitant]
  4. LIPITOR [Concomitant]
  5. HEPARIN SODIUM [Concomitant]
  6. LASIX [Concomitant]
  7. PLAVIX [Concomitant]
  8. SOLITA-T1 (GLUCOSE, SODIUM CHLORIDE, SODIUM LACTATE) INJECTION [Concomitant]
  9. HANP (CARPERITIDE) INJECTION [Concomitant]
  10. ISOSORBIDE MONONITRATE [Concomitant]
  11. SELBEX (TEPRENONE) [Concomitant]
  12. FENTANYL (FENTANYL CITRATE) INJECTION [Concomitant]
  13. LASIX (FUROSEMIDE SODIUM) INJECTION [Concomitant]

REACTIONS (1)
  - HYPERNATRAEMIA [None]
